FAERS Safety Report 21455874 (Version 2)
Quarter: 2022Q4

REPORT INFORMATION
  Report Type: Report from Study
  Country: CA (occurrence: CA)
  Receive Date: 20221014
  Receipt Date: 20221030
  Transmission Date: 20230113
  Serious: Yes (Other)
  Sender: FDA-Public Use
  Company Number: CA-ABBVIE-22K-028-4530475-00

PATIENT
  Age: 65 Year
  Sex: Male

DRUGS (1)
  1. RINVOQ [Suspect]
     Active Substance: UPADACITINIB
     Indication: Rheumatoid arthritis
     Dosage: STRENGTH: 15MG
     Route: 048
     Dates: start: 20211102

REACTIONS (1)
  - Cardiac disorder [Unknown]

NARRATIVE: CASE EVENT DATE: 20220801
